FAERS Safety Report 7811302-0 (Version None)
Quarter: 2011Q4

REPORT INFORMATION
  Report Type: 
  Country: None (occurrence: None)
  Receive Date: 20111013
  Receipt Date: 20111010
  Transmission Date: 20120403
  Serious: No
  Sender: FDA-Public Use
  Company Number: US-B.I. PHARMACEUTICALS,INC./RIDGEFIELD-2011-BP-23999BP

PATIENT
  Age: 85 Year
  Sex: Male

DRUGS (3)
  1. PRADAXA [Suspect]
     Indication: ATRIAL FIBRILLATION
     Dosage: 300 MG
     Route: 048
     Dates: start: 20110901
  2. METHIMAZOLE [Concomitant]
     Indication: HYPERTHYROIDISM
  3. TERAZOSIN HCL [Concomitant]
     Indication: PROSTATIC DISORDER

REACTIONS (3)
  - IMPAIRED HEALING [None]
  - FLATULENCE [None]
  - GASTROINTESTINAL DISORDER [None]
